FAERS Safety Report 8585393-6 (Version None)
Quarter: 2012Q3

REPORT INFORMATION
  Report Type: 
  Country: None (occurrence: None)
  Receive Date: 20120810
  Receipt Date: 20120801
  Transmission Date: 20120928
  Serious: Yes (Hospitalization, Other)
  Sender: FDA-Public Use
  Company Number: AU-B.I. PHARMACEUTICALS,INC./RIDGEFIELD-2012-AU-01349AU

PATIENT
  Sex: Male

DRUGS (6)
  1. BUPRENORPHINE [Concomitant]
  2. PRADAXA [Suspect]
     Indication: ATRIAL FIBRILLATION
     Dosage: 220 MG
     Dates: start: 20111001
  3. FUROSEMIDE [Concomitant]
  4. METOPROLOL TARTRATE [Concomitant]
  5. DIAZEPAM [Concomitant]
  6. FLUDROCORTISONE ACETATE [Concomitant]
     Indication: HYPOTENSION

REACTIONS (1)
  - ISCHAEMIC STROKE [None]
